FAERS Safety Report 7325283-X (Version None)
Quarter: 2011Q1

REPORT INFORMATION
  Report Type: 
  Country: None (occurrence: None)
  Receive Date: 20110302
  Receipt Date: 20110218
  Transmission Date: 20110831
  Serious: Yes (Other)
  Sender: FDA-Public Use
  Company Number: JP-US-EMD SERONO, INC.-7032124

PATIENT
  Sex: Female
  Weight: 47 kg

DRUGS (4)
  1. CHORIONIC GONADOTROPIN [Concomitant]
     Dates: start: 20100430, end: 20100508
  2. PROGESTERONE [Concomitant]
     Dates: start: 20100506, end: 20100508
  3. GONAL-F [Suspect]
     Indication: AMENORRHOEA
     Dates: start: 20100423, end: 20100429
  4. CLOMIFENE [Concomitant]
     Dates: start: 20100418, end: 20100422

REACTIONS (1)
  - ABORTION [None]
